FAERS Safety Report 20124842 (Version 2)
Quarter: 2022Q1

REPORT INFORMATION
  Report Type: Spontaneous
  Country: US (occurrence: US)
  Receive Date: 20211129
  Receipt Date: 20220315
  Transmission Date: 20220423
  Serious: Yes (Other)
  Sender: FDA-Public Use
  Company Number: US-GLAXOSMITHKLINE-US2021GSK244066

PATIENT

DRUGS (8)
  1. ZANTAC [Suspect]
     Active Substance: RANITIDINE HYDROCHLORIDE
     Indication: Dyspepsia
     Dosage: UNKNOWN AT THIS TIME, WE
     Route: 065
     Dates: start: 199901, end: 201912
  2. ZANTAC [Suspect]
     Active Substance: RANITIDINE HYDROCHLORIDE
     Indication: Urticaria
     Dosage: UNKNOWN AT THIS TIME, 2-3X/WEEKLY WHEN PREGNANT
     Route: 065
     Dates: start: 199901, end: 201912
  3. ZANTAC [Suspect]
     Active Substance: RANITIDINE HYDROCHLORIDE
     Indication: Multiple allergies
     Dosage: UNKNOWN AT THIS TIME, PERIODS OF NON-USE
     Route: 065
     Dates: start: 199901, end: 201912
  4. ZANTAC [Suspect]
     Active Substance: RANITIDINE HYDROCHLORIDE
     Dosage: UNKNOWN AT THIS TIME, AS NEEDED
     Route: 065
     Dates: start: 199901, end: 201912
  5. ZANTAC [Suspect]
     Active Substance: RANITIDINE HYDROCHLORIDE
     Indication: Dyspepsia
     Dosage: UNKNOWN AT THIS TIME, WE
     Route: 065
     Dates: start: 199901, end: 201912
  6. ZANTAC [Suspect]
     Active Substance: RANITIDINE HYDROCHLORIDE
     Indication: Urticaria
     Dosage: UNKNOWN AT THIS TIME, 2-3X/WEEKLY WHEN PREGNANT
     Route: 065
     Dates: start: 199901, end: 201912
  7. ZANTAC [Suspect]
     Active Substance: RANITIDINE HYDROCHLORIDE
     Indication: Multiple allergies
     Dosage: UNKNOWN AT THIS TIME, PERIODS OF NON-USE
     Route: 065
     Dates: start: 199901, end: 201912
  8. ZANTAC [Suspect]
     Active Substance: RANITIDINE HYDROCHLORIDE
     Dosage: UNKNOWN AT THIS TIME, AS NEEDED
     Route: 065
     Dates: start: 199901, end: 201912

REACTIONS (1)
  - Breast cancer [Unknown]
